FAERS Safety Report 16465362 (Version 5)
Quarter: 2019Q4

REPORT INFORMATION
  Report Type: Spontaneous
  Country: US (occurrence: US)
  Receive Date: 20190621
  Receipt Date: 20191001
  Transmission Date: 20200122
  Serious: Yes (Death, Hospitalization, Congenital Anomaly)
  Sender: FDA-Public Use
  Company Number: US-ACTELION-A-NJ2019-191540

PATIENT
  Age: 64 Year
  Sex: Male
  Weight: 136.51 kg

DRUGS (3)
  1. OPSUMIT [Suspect]
     Active Substance: MACITENTAN
     Indication: PULMONARY ARTERIAL HYPERTENSION
     Dosage: 10 MG, QD
     Route: 048
     Dates: start: 20181218, end: 20190626
  2. OXYGEN. [Concomitant]
     Active Substance: OXYGEN
  3. REMODULIN [Concomitant]
     Active Substance: TREPROSTINIL

REACTIONS (20)
  - Pulmonary arterial hypertension [Fatal]
  - Oedema [Unknown]
  - Hyperbilirubinaemia [Unknown]
  - Cardiorenal syndrome [Unknown]
  - Right ventricular failure [Unknown]
  - Catheter site pain [Unknown]
  - Fluid overload [Unknown]
  - Acute right ventricular failure [Recovered/Resolved with Sequelae]
  - Acute respiratory failure [Recovered/Resolved with Sequelae]
  - Complication associated with device [Unknown]
  - Headache [Unknown]
  - Drug ineffective [Unknown]
  - Generalised oedema [Unknown]
  - Respiratory failure [Fatal]
  - Polyuria [Unknown]
  - Blood creatinine increased [Unknown]
  - Gout [Recovered/Resolved]
  - Therapy change [Unknown]
  - Dyspnoea [Unknown]
  - Neck pain [Unknown]

NARRATIVE: CASE EVENT DATE: 20190204
